FAERS Safety Report 7457707-1 (Version None)
Quarter: 2011Q2

REPORT INFORMATION
  Report Type: 
  Country: None (occurrence: None)
  Receive Date: 20110504
  Receipt Date: 20110428
  Transmission Date: 20111010
  Serious: Yes (Death, Other)
  Sender: FDA-Public Use
  Company Number: US-AMGEN-USASP2011020399

PATIENT
  Age: 77 Year
  Sex: Female
  Weight: 51.474 kg

DRUGS (7)
  1. NPLATE [Suspect]
     Indication: IDIOPATHIC THROMBOCYTOPENIC PURPURA
  2. XANAX [Concomitant]
     Dosage: UNK
     Dates: start: 20091124
  3. SYNTHROID [Concomitant]
     Dosage: 100 A?G, QD
     Dates: start: 20090210
  4. PLATELETS [Concomitant]
     Dosage: UNK
     Dates: start: 20091011
  5. TYLENOL (CAPLET) [Concomitant]
     Dosage: UNK UNK, PRN
     Dates: start: 20100525
  6. NPLATE [Suspect]
     Indication: THROMBOCYTOPENIA
     Dosage: 1 A?G/KG, QWK
     Route: 058
     Dates: start: 20091009, end: 20100524
  7. VITAMIN B12                        /00091801/ [Concomitant]
     Dosage: 1000 A?G, UNK
     Route: 030

REACTIONS (14)
  - CONSTIPATION [None]
  - POOR QUALITY SLEEP [None]
  - TOXICITY TO VARIOUS AGENTS [None]
  - DYSPNOEA [None]
  - FATIGUE [None]
  - DIZZINESS [None]
  - PERFORMANCE STATUS DECREASED [None]
  - ANXIETY [None]
  - DECREASED APPETITE [None]
  - COUGH [None]
  - DIARRHOEA [None]
  - WEIGHT DECREASED [None]
  - LUNG NEOPLASM MALIGNANT [None]
  - VITAMIN B12 DEFICIENCY [None]
